FAERS Safety Report 10266116 (Version 1)
Quarter: 2014Q2

REPORT INFORMATION
  Report Type: Spontaneous
  Country: US (occurrence: US)
  Receive Date: 20140627
  Receipt Date: 20140627
  Transmission Date: 20141212
  Serious: Yes (Death, Life-Threatening, Disabling, Other)
  Sender: FDA-Public Use
  Company Number: US-BAXTER-2014BAX034230

PATIENT
  Sex: Female
  Weight: 64.92 kg

DRUGS (3)
  1. CYTOXAN (CYCLOPHOSPHAMIDE FOR INJECTION, USP)  1 GRAM VIAL (LYOPHILIZE [Suspect]
     Indication: PRODUCT USED FOR UNKNOWN INDICATION
     Route: 065
  2. LAPATINIB [Suspect]
     Indication: BREAST CANCER
     Route: 048
     Dates: start: 20140306, end: 20140515
  3. CAPECITABINE [Concomitant]
     Indication: PRODUCT USED FOR UNKNOWN INDICATION
     Route: 065

REACTIONS (3)
  - Breast cancer [Fatal]
  - Drug ineffective [Unknown]
  - Hypotension [Unknown]
